FAERS Safety Report 15447785 (Version 3)
Quarter: 2020Q2

REPORT INFORMATION
  Report Type: Report from Study
  Country: US (occurrence: US)
  Receive Date: 20180928
  Receipt Date: 20200406
  Transmission Date: 20200713
  Serious: Yes (Death, Hospitalization)
  Sender: FDA-Public Use
  Company Number: US-ACTELION-A-NJ2017-162259

PATIENT
  Age: 85 Year
  Sex: Male

DRUGS (15)
  1. OPSUMIT [Suspect]
     Active Substance: MACITENTAN
     Dosage: UNK
     Route: 048
     Dates: start: 2018
  2. FUROSEMIDE. [Concomitant]
     Active Substance: FUROSEMIDE
  3. AZELASTINE. [Concomitant]
     Active Substance: AZELASTINE HYDROCHLORIDE
  4. FLUTICASONE. [Concomitant]
     Active Substance: FLUTICASONE
     Dosage: 50 MCG
  5. LOSARTAN POTASSIUM. [Concomitant]
     Active Substance: LOSARTAN POTASSIUM
     Dosage: 50 MG
  6. TERAZOSIN [Concomitant]
     Active Substance: TERAZOSIN HYDROCHLORIDE
     Dosage: 5 MG
  7. AMOXICILLIN. [Concomitant]
     Active Substance: AMOXICILLIN
  8. SYMBICORT [Concomitant]
     Active Substance: BUDESONIDE\FORMOTEROL FUMARATE DIHYDRATE
  9. XARELTO [Concomitant]
     Active Substance: RIVAROXABAN
     Dosage: 20 MG
  10. OPSUMIT [Suspect]
     Active Substance: MACITENTAN
     Indication: PULMONARY ARTERIAL HYPERTENSION
     Dosage: UNK
     Route: 048
  11. BYSTOLIC [Concomitant]
     Active Substance: NEBIVOLOL HYDROCHLORIDE
     Dosage: 10 MG
  12. HYDROCODONE [Concomitant]
     Active Substance: HYDROCODONE
  13. PROBENECID. [Concomitant]
     Active Substance: PROBENECID
     Dosage: 500 MG
  14. VENTOLIN [Concomitant]
     Active Substance: ALBUTEROL SULFATE
  15. FINASTERIDE. [Concomitant]
     Active Substance: FINASTERIDE

REACTIONS (7)
  - Decreased activity [Not Recovered/Not Resolved]
  - Adverse event [Unknown]
  - Malaise [Not Recovered/Not Resolved]
  - Death [Fatal]
  - Blood pressure decreased [Unknown]
  - Unevaluable event [Not Recovered/Not Resolved]
  - Product dose omission [Recovered/Resolved]

NARRATIVE: CASE EVENT DATE: 2018
